FAERS Safety Report 4944985-3 (Version None)
Quarter: 2006Q1

REPORT INFORMATION
  Report Type: 
  Country: None (occurrence: None)
  Receive Date: 20060123
  Receipt Date: 20050815
  Transmission Date: 20060701
  Serious: Yes (Hospitalization)
  Sender: FDA-Public Use
  Company Number: PHEH2005US07977

PATIENT
  Age: 64 Year
  Sex: Male
  Weight: 96.6 kg

DRUGS (9)
  1. SANDOSTATIN LAR [Suspect]
     Indication: CARCINOID SYNDROME
     Dosage: 10 MG, QMO, INTRAMUSCULAR; 20 MG QMO, INTRAMUSCULAR
     Route: 030
     Dates: start: 20050503, end: 20050603
  2. SANDOSTATIN LAR [Suspect]
     Indication: CARCINOID SYNDROME
     Dosage: 10 MG, QMO, INTRAMUSCULAR; 20 MG QMO, INTRAMUSCULAR
     Route: 030
     Dates: start: 20050603, end: 20050603
  3. AVANDIA [Concomitant]
  4. LOPRESSOR [Concomitant]
  5. WARFARIN SODIUM [Concomitant]
  6. LASIX [Concomitant]
  7. PREVACID [Concomitant]
  8. POTASSIUM (POTASSIUM) [Concomitant]
  9. DIOVAN [Concomitant]

REACTIONS (3)
  - CARDIAC FAILURE CONGESTIVE [None]
  - CONDITION AGGRAVATED [None]
  - THERAPEUTIC RESPONSE UNEXPECTED [None]
